FAERS Safety Report 11824344 (Version 2)
Quarter: 2016Q1

REPORT INFORMATION
  Report Type: Report from Study
  Country: US (occurrence: US)
  Receive Date: 20151210
  Receipt Date: 20160114
  Transmission Date: 20160525
  Serious: Yes (Other)
  Sender: FDA-Public Use
  Company Number: US-GILEAD-2015-0186083

PATIENT
  Age: 69 Year
  Sex: Male

DRUGS (1)
  1. IDELALISIB [Suspect]
     Active Substance: IDELALISIB
     Indication: PARAPROTEINAEMIA
     Dosage: 100 MG, BID
     Route: 048
     Dates: start: 20150720

REACTIONS (3)
  - Off label use [Recovered/Resolved]
  - Drug ineffective for unapproved indication [Unknown]
  - Disease progression [Unknown]
